FAERS Safety Report 6707718-6 (Version None)
Quarter: 2010Q2

REPORT INFORMATION
  Report Type: 
  Country: None (occurrence: None)
  Receive Date: 20100503
  Receipt Date: 20091023
  Transmission Date: 20101027
  Serious: No
  Sender: FDA-Public Use
  Company Number: US-ASTRAZENECA-2009SE22217

PATIENT
  Age: 27 Year
  Sex: Female
  Weight: 145.1 kg

DRUGS (5)
  1. NEXIUM [Suspect]
     Indication: GASTROOESOPHAGEAL REFLUX DISEASE
     Route: 048
     Dates: start: 20090901
  2. ZANTAC [Concomitant]
  3. TYLENOL-500 [Concomitant]
     Indication: PAIN
  4. VICODIN [Concomitant]
     Indication: PAIN
  5. SUDAFED 12 HOUR [Concomitant]

REACTIONS (3)
  - DYSPEPSIA [None]
  - GASTROOESOPHAGEAL REFLUX DISEASE [None]
  - INCORRECT DOSE ADMINISTERED [None]
